FAERS Safety Report 10761972 (Version 2)
Quarter: 2015Q1

REPORT INFORMATION
  Report Type: Spontaneous
  Country: NO (occurrence: NO)
  Receive Date: 20150204
  Receipt Date: 20150210
  Transmission Date: 20150721
  Serious: Yes (Hospitalization)
  Sender: FDA-Public Use
  Company Number: NO-BRACCO-000242

PATIENT
  Age: 55 Year
  Sex: Female

DRUGS (1)
  1. SONOVUE [Suspect]
     Active Substance: SULFUR HEXAFLUORIDE
     Indication: ULTRASOUND LIVER
     Route: 040
     Dates: start: 20141203, end: 20141203

REACTIONS (5)
  - Pruritus [Recovered/Resolved]
  - Malaise [Recovered/Resolved]
  - Anaphylactoid reaction [Recovered/Resolved]
  - Visual impairment [Recovered/Resolved]
  - Urticaria [Recovered/Resolved]

NARRATIVE: CASE EVENT DATE: 20141203
